FAERS Safety Report 25281887 (Version 1)
Quarter: 2025Q2

REPORT INFORMATION
  Report Type: Spontaneous
  Country: IN (occurrence: None)
  Receive Date: 20250508
  Receipt Date: 20250508
  Transmission Date: 20250716
  Serious: Yes (Other)
  Sender: ADAMAS PHARMA
  Company Number: IN-ADAMAS Pharma-ADM202504-001448

PATIENT
  Age: 63 Year
  Sex: Female

DRUGS (3)
  1. AMANTADINE HYDROCHLORIDE [Suspect]
     Active Substance: AMANTADINE HYDROCHLORIDE
     Indication: Dyskinesia
     Dosage: FOR 1 YEAR
  2. LEVODOPA [Concomitant]
     Active Substance: LEVODOPA
  3. PRAMIPEXOLE [Concomitant]
     Active Substance: PRAMIPEXOLE

REACTIONS (1)
  - Corneal oedema [Recovered/Resolved]
